FAERS Safety Report 6732503-9 (Version None)
Quarter: 2010Q2

REPORT INFORMATION
  Report Type: 
  Country: None (occurrence: None)
  Receive Date: 20100519
  Receipt Date: 20100510
  Transmission Date: 20101027
  Serious: Yes (Hospitalization)
  Sender: FDA-Public Use
  Company Number: TR-ELI_LILLY_AND_COMPANY-TR201005002371

PATIENT

DRUGS (4)
  1. HUMULIN R [Suspect]
     Indication: GESTATIONAL DIABETES
     Dosage: 4 IU, EACH MORNING
     Route: 064
     Dates: start: 20100201, end: 20100222
  2. HUMULIN R [Suspect]
     Dosage: 5 IU, OTHER
     Route: 064
     Dates: start: 20100201, end: 20100222
  3. HUMULIN R [Suspect]
     Dosage: 3 IU, EACH EVENING
     Route: 064
     Dates: start: 20100201, end: 20100222
  4. FERRO SANOL [Concomitant]
     Indication: MINERAL SUPPLEMENTATION
     Dosage: UNK UNK, DAILY (1/D)
     Route: 064
     Dates: end: 20100223

REACTIONS (3)
  - DRUG EXPOSURE DURING PREGNANCY [None]
  - HYPOGLYCAEMIA [None]
  - RESPIRATORY DISORDER [None]
